FAERS Safety Report 4715224-3 (Version None)
Quarter: 2005Q3

REPORT INFORMATION
  Report Type: 
  Country: None (occurrence: None)
  Receive Date: 20050715
  Receipt Date: 20050706
  Transmission Date: 20060218
  Serious: Yes (Hospitalization)
  Sender: FDA-Public Use
  Company Number: BE-ROCHE-409689

PATIENT
  Age: 33 Year
  Sex: Female
  Weight: 68.5 kg

DRUGS (6)
  1. DACLIZUMAB [Suspect]
     Route: 042
     Dates: start: 20050523, end: 20050608
  2. DACLIZUMAB [Suspect]
     Route: 042
     Dates: start: 20050622
  3. MYCOPHENOLATE MOFETIL [Suspect]
     Route: 065
  4. CYCLOSPORINE [Suspect]
     Route: 065
  5. CALCIUM ANTAGONIST [Concomitant]
  6. STATIN NOS [Concomitant]

REACTIONS (1)
  - CYTOMEGALOVIRUS INFECTION [None]
